FAERS Safety Report 9216884 (Version 1)
Quarter: 2013Q2

REPORT INFORMATION
  Report Type: Spontaneous
  Country: US (occurrence: None)
  Receive Date: 20130403
  Receipt Date: 20130403
  Transmission Date: 20140414
  Serious: Yes (Other)
  Sender: FDA-Public Use
  Company Number: 1654676

PATIENT
  Age: 14 Year
  Sex: Female

DRUGS (8)
  1. GEMCITABINE HYDROCHLORIDE [Suspect]
     Indication: SYNOVIAL SARCOMA
     Dosage: 900 MG/M2 MILLIGRAM(S) /SQ. METER (CYCLICS)
  2. DOCETAXEL [Suspect]
     Indication: SYNOVIAL SARCOMA
     Dosage: 100 MG/M2 MILLIGRAM(S) /SQ. METER (CYCLICAL)
  3. THERAPEUTIC RADIOPHARMACEUTICALS [Suspect]
     Indication: SYNOVIAL SARCOMA
     Dosage: 350 CGY IN 8 FRACTIONS (UNKNOWN)?20 GY IN 10 FRACTIONS (UNKNOWN)
  4. THERAPEUTIC RADIOPHARMACEUTICALS [Suspect]
     Indication: SYNOVIAL SARCOMA
     Dosage: 350 CGY IN 8 FRACTIONS (UNKNOWN)?20 GY IN 10 FRACTIONS (UNKNOWN)
  5. IFOSFAMIDE [Concomitant]
  6. ADRIAMYCIN /0030901/ [Concomitant]
  7. DEXAMETHASONE [Concomitant]
  8. ETOPOSIDE [Concomitant]

REACTIONS (5)
  - Compartment syndrome [None]
  - Recall phenomenon [None]
  - Myositis [None]
  - Off label use [None]
  - Drug ineffective [None]
